FAERS Safety Report 12621812 (Version 1)
Quarter: 2016Q3

REPORT INFORMATION
  Report Type: Spontaneous
  Country: US (occurrence: US)
  Receive Date: 20160804
  Receipt Date: 20160804
  Transmission Date: 20161109
  Serious: No
  Sender: FDA-Public Use
  Company Number: US-PFIZER INC-2016332559

PATIENT
  Age: 72 Year
  Sex: Male
  Weight: 107.5 kg

DRUGS (8)
  1. METHYLPREDNISOLONE. [Concomitant]
     Active Substance: METHYLPREDNISOLONE
     Indication: COUGH
     Dosage: TAPERED DOSE, TOOK 6 TABLETS THE FIRST DAY, 5 TABLETS THE SECOND DAY, AND SO ON
     Dates: start: 201606, end: 201606
  2. HYCODAN /00060002/ [Concomitant]
     Active Substance: HYDROCODONE BITARTRATE
     Indication: COUGH
     Dosage: 2 DF, AS NEEDED, 2 TSPS PER DAY AS NEEDED
     Dates: start: 20160609, end: 20160612
  3. BENZONATATE. [Concomitant]
     Active Substance: BENZONATATE
     Indication: NASAL CONGESTION
     Dosage: 800 MG, DAILY, 200MG TABLETS, FOUR A DAY FOR 6 DAYS
     Dates: start: 20160612, end: 201606
  4. DOXYCYCLINE HYCLATE. [Concomitant]
     Active Substance: DOXYCYCLINE HYCLATE
     Indication: NASAL CONGESTION
     Dosage: 100 MG, DAILY, 100MG TABLET, ONE A DAY FOR 10 DAYS
     Dates: start: 20160612, end: 20160622
  5. ASMANEX [Concomitant]
     Active Substance: MOMETASONE FUROATE
     Indication: ASTHMA
     Dosage: 4MG TWICE A DAY FOR 5 DAYS
     Dates: start: 20160615, end: 201606
  6. PREVNAR 13 [Suspect]
     Active Substance: PNEUMOCOCCAL 13-VALENT CONJUGATE VACCINE
     Indication: IMMUNISATION
     Dosage: 0.5 ML, SINGLE
     Dates: start: 20160630, end: 20160630
  7. METHYLPREDNISOLONE. [Concomitant]
     Active Substance: METHYLPREDNISOLONE
     Indication: NASAL CONGESTION
  8. VIAGRA [Suspect]
     Active Substance: SILDENAFIL CITRATE
     Dosage: UNK, AS NEEDED

REACTIONS (4)
  - Fatigue [Recovered/Resolved]
  - Headache [Recovered/Resolved]
  - Pain in extremity [Recovering/Resolving]
  - Decreased appetite [Recovered/Resolved]

NARRATIVE: CASE EVENT DATE: 20160701
